FAERS Safety Report 16187429 (Version 1)
Quarter: 2019Q2

REPORT INFORMATION
  Report Type: Spontaneous
  Country: DE (occurrence: DE)
  Receive Date: 20190412
  Receipt Date: 20190412
  Transmission Date: 20190711
  Serious: Yes (Hospitalization)
  Sender: FDA-Public Use
  Company Number: DE-ALKEM LABORATORIES LIMITED-DE-ALKEM-2019-01362

PATIENT
  Age: 15 Year
  Sex: Female
  Weight: 47 kg

DRUGS (3)
  1. METHYLPHENIDATE. [Concomitant]
     Active Substance: METHYLPHENIDATE
     Indication: PRODUCT USED FOR UNKNOWN INDICATION
     Dosage: 30 MG, OD
     Route: 065
  2. QUETIAPINE FUMARATE. [Suspect]
     Active Substance: QUETIAPINE FUMARATE
     Indication: SUICIDAL IDEATION
     Dosage: 400 MG, UNK
     Route: 048
     Dates: start: 20180906, end: 20180906
  3. VOMEX A [Suspect]
     Active Substance: DIMENHYDRINATE
     Indication: SUICIDAL IDEATION
     Dosage: 500 MG, UNK
     Route: 048
     Dates: start: 20180906, end: 20180906

REACTIONS (1)
  - Intentional overdose [Unknown]

NARRATIVE: CASE EVENT DATE: 20180906
